FAERS Safety Report 8535114-8 (Version None)
Quarter: 2012Q3

REPORT INFORMATION
  Report Type: 
  Country: None (occurrence: None)
  Receive Date: 20120724
  Receipt Date: 20120720
  Transmission Date: 20120928
  Serious: Yes (Hospitalization)
  Sender: FDA-Public Use
  Company Number: NZ-PFIZER INC-2012175296

PATIENT
  Age: 64 Year
  Sex: Female

DRUGS (1)
  1. EFFEXOR XR [Suspect]
     Indication: DEPRESSION
     Dosage: UNK
     Dates: start: 20111014

REACTIONS (7)
  - CIRCUMSTANCE OR INFORMATION CAPABLE OF LEADING TO MEDICATION ERROR [None]
  - HAEMORRHAGE [None]
  - VOMITING [None]
  - LOSS OF CONSCIOUSNESS [None]
  - COMA [None]
  - HYPONATRAEMIA [None]
  - FEELING ABNORMAL [None]
